FAERS Safety Report 17075949 (Version 3)
Quarter: 2020Q2

REPORT INFORMATION
  Report Type: Spontaneous
  Country: US (occurrence: US)
  Receive Date: 20191126
  Receipt Date: 20200601
  Transmission Date: 20200713
  Serious: Yes (Other)
  Sender: FDA-Public Use
  Company Number: US-GILEAD-2019-0439508

PATIENT
  Age: 57 Year
  Sex: Male

DRUGS (35)
  1. ATRIPLA [Suspect]
     Active Substance: EFAVIRENZ\EMTRICITABINE\TENOFOVIR DISOPROXIL FUMARATE
     Indication: HIV INFECTION
     Dosage: UNK
     Route: 048
     Dates: start: 20160510, end: 20170502
  2. ALENDRONATE SODIUM. [Concomitant]
     Active Substance: ALENDRONATE SODIUM
  3. KETOCONAZOLE. [Concomitant]
     Active Substance: KETOCONAZOLE
  4. MONTELUKAST [Concomitant]
     Active Substance: MONTELUKAST SODIUM
  5. CLOPIDOGREL [Concomitant]
     Active Substance: CLOPIDOGREL BISULFATE
  6. TIZANIDINE. [Concomitant]
     Active Substance: TIZANIDINE
  7. CHANTIX [Concomitant]
     Active Substance: VARENICLINE TARTRATE
  8. ADVAIR HFA [Concomitant]
     Active Substance: FLUTICASONE PROPIONATE\SALMETEROL XINAFOATE
  9. ISENTRESS [Concomitant]
     Active Substance: RALTEGRAVIR POTASSIUM
  10. METRONIDAZOLE. [Concomitant]
     Active Substance: METRONIDAZOLE
  11. TRELEGY ELLIPTA [Concomitant]
     Active Substance: FLUTICASONE FUROATE\UMECLIDINIUM BROMIDE\VILANTEROL TRIFENATATE
  12. OXYCODONE/APAP [OXYCODONE;PARACETAMOL] [Concomitant]
  13. ACYCLOVIR [ACICLOVIR] [Concomitant]
     Active Substance: ACYCLOVIR
  14. METOPROLOL TARTRATE. [Concomitant]
     Active Substance: METOPROLOL TARTRATE
  15. PREDNISONE. [Concomitant]
     Active Substance: PREDNISONE
  16. NITROGLYCERIN. [Concomitant]
     Active Substance: NITROGLYCERIN
  17. ALBUTEROL SULFATE. [Concomitant]
     Active Substance: ALBUTEROL SULFATE
  18. AZITHROMYCIN ANHYDROUS. [Concomitant]
     Active Substance: AZITHROMYCIN ANHYDROUS
  19. HYDROCODONE/ACETAMINOPHEN [Concomitant]
     Active Substance: ACETAMINOPHEN\HYDROCODONE
  20. DOK [Concomitant]
     Active Substance: DOCUSATE SODIUM
  21. ATORVASTATIN [Concomitant]
     Active Substance: ATORVASTATIN
  22. PROAIR HFA [Concomitant]
     Active Substance: ALBUTEROL SULFATE
  23. FAMOTIDINE. [Concomitant]
     Active Substance: FAMOTIDINE
  24. CIPRODEX [Concomitant]
     Active Substance: CIPROFLOXACIN HYDROCHLORIDE\DEXAMETHASONE
  25. SILDENAFIL. [Concomitant]
     Active Substance: SILDENAFIL
  26. ODEFSEY [Concomitant]
     Active Substance: EMTRICITABINE\RILPIVIRINE HYDROCHLORIDE\TENOFOVIR ALAFENAMIDE FUMARATE
  27. SPIRIVA [Concomitant]
     Active Substance: TIOTROPIUM BROMIDE MONOHYDRATE
  28. LISINOPRIL. [Concomitant]
     Active Substance: LISINOPRIL
  29. IBUPROFEN. [Concomitant]
     Active Substance: IBUPROFEN
  30. AFLURIA QUAD [Concomitant]
  31. DIAZEPAM. [Concomitant]
     Active Substance: DIAZEPAM
  32. PANTOPRAZOLE [Concomitant]
     Active Substance: PANTOPRAZOLE
  33. TRIAMCINOLON [TRIAMCINOLONE] [Concomitant]
     Active Substance: TRIAMCINOLONE
  34. NEOMYCIN/POLYMYXIN/GRAMICIDIN [Concomitant]
     Active Substance: GRAMICIDIN\NEOMYCIN\POLYMYXIN
  35. POTASSIUM CHLORIDE. [Concomitant]
     Active Substance: POTASSIUM CHLORIDE

REACTIONS (8)
  - Economic problem [Unknown]
  - Osteoporosis [Not Recovered/Not Resolved]
  - Osteopenia [Not Recovered/Not Resolved]
  - Anhedonia [Unknown]
  - Emotional distress [Unknown]
  - Anxiety [Unknown]
  - Pain [Unknown]
  - Bone density decreased [Unknown]

NARRATIVE: CASE EVENT DATE: 20170123
